FAERS Safety Report 23549745 (Version 1)
Quarter: 2024Q1

REPORT INFORMATION
  Report Type: Report from Study
  Country: MX (occurrence: MX)
  Receive Date: 20240221
  Receipt Date: 20240221
  Transmission Date: 20240409
  Serious: Yes (Hospitalization)
  Sender: FDA-Public Use
  Company Number: MX-002147023-NVSC2023MX271104

PATIENT
  Age: 33 Year
  Sex: Male
  Weight: 72 kg

DRUGS (2)
  1. GILENYA [Suspect]
     Active Substance: FINGOLIMOD HYDROCHLORIDE
     Indication: Multiple sclerosis
     Dosage: 0.5 MG, QD
     Route: 048
     Dates: start: 202208
  2. GILENYA [Suspect]
     Active Substance: FINGOLIMOD HYDROCHLORIDE
     Dosage: 0.5 MG, QD
     Route: 048
     Dates: start: 20221007

REACTIONS (9)
  - Gait disturbance [Recovering/Resolving]
  - Back pain [Recovering/Resolving]
  - Pain [Recovering/Resolving]
  - Paresis anal sphincter [Unknown]
  - Memory impairment [Unknown]
  - Speech disorder [Unknown]
  - Product availability issue [Unknown]
  - Weight decreased [Not Recovered/Not Resolved]
  - Influenza [Unknown]

NARRATIVE: CASE EVENT DATE: 20230801
